FAERS Safety Report 5573649-0 (Version None)
Quarter: 2007Q4

REPORT INFORMATION
  Report Type: 
  Country: None (occurrence: None)
  Receive Date: 20071220
  Receipt Date: 20071203
  Transmission Date: 20080405
  Serious: Yes (Death, Hospitalization)
  Sender: FDA-Public Use
  Company Number: 8027979

PATIENT
  Age: 75 Year
  Sex: Male
  Weight: 69.6 kg

DRUGS (3)
  1. KEPPRA [Suspect]
  2. TEMODAR [Suspect]
     Indication: GLIOBLASTOMA MULTIFORME
     Dosage: 75 MG/M2 1/D PO
     Route: 048
     Dates: start: 20070701, end: 20070801
  3. RISPERDAL [Suspect]

REACTIONS (6)
  - BRAIN OEDEMA [None]
  - CONFUSIONAL STATE [None]
  - DISEASE PROGRESSION [None]
  - GENERAL PHYSICAL HEALTH DETERIORATION [None]
  - INFECTION [None]
  - INTESTINAL OBSTRUCTION [None]
